FAERS Safety Report 9372555 (Version 1)
Quarter: 2013Q2

REPORT INFORMATION
  Report Type: Report from Study
  Country: US (occurrence: US)
  Receive Date: 20130627
  Receipt Date: 20130627
  Transmission Date: 20140414
  Serious: Yes (Death)
  Sender: FDA-Public Use
  Company Number: US-MYLANLABS-2013S1001038

PATIENT
  Age: 51 Year
  Sex: Male
  Weight: 108.86 kg

DRUGS (5)
  1. CLOZAPINE TABLETS [Suspect]
     Route: 048
  2. DEPAKOTE [Concomitant]
     Dosage: 500MG/QAM, 1000MG/QPM
  3. NAVANE [Concomitant]
  4. PAXIL /00500401/ [Concomitant]
  5. PREDNISONE [Concomitant]

REACTIONS (1)
  - Chronic obstructive pulmonary disease [Fatal]
